FAERS Safety Report 12673010 (Version 1)
Quarter: 2016Q3

REPORT INFORMATION
  Report Type: Spontaneous
  Country: US (occurrence: US)
  Receive Date: 20160822
  Receipt Date: 20160822
  Transmission Date: 20161109
  Serious: No
  Sender: FDA-Public Use
  Company Number: US-BAYER-2016-162255

PATIENT
  Sex: Male
  Weight: 72.56 kg

DRUGS (1)
  1. MIRALAX [Suspect]
     Active Substance: POLYETHYLENE GLYCOL 3350
     Indication: COLONOSCOPY
     Dosage: 238 G IN 14 8OZ GLASSES OF FLUID AND TO DRINK EVERY 15 MINUTES THE DAY BEFORE HIS COLONOSCOPY
     Route: 048

REACTIONS (2)
  - Off label use [None]
  - Product use issue [None]
